FAERS Safety Report 14147507 (Version 1)
Quarter: 2017Q4

REPORT INFORMATION
  Report Type: Spontaneous
  Country: US (occurrence: US)
  Receive Date: 20171101
  Receipt Date: 20171101
  Transmission Date: 20180321
  Serious: No
  Sender: FDA-Public Use
  Company Number: US-TEVA-820702ACC

PATIENT
  Age: 23 Year
  Sex: Female
  Weight: 77.18 kg

DRUGS (2)
  1. FLUVOXAMINE [Concomitant]
     Active Substance: FLUVOXAMINE
     Indication: OBSESSIVE-COMPULSIVE DISORDER
  2. PLAN B ONE-STEP [Suspect]
     Active Substance: LEVONORGESTREL
     Indication: POST COITAL CONTRACEPTION
     Dates: start: 20171016, end: 20171016

REACTIONS (4)
  - Fatigue [Not Recovered/Not Resolved]
  - Dyschezia [Recovered/Resolved]
  - Irritability [Not Recovered/Not Resolved]
  - Dyspepsia [Not Recovered/Not Resolved]

NARRATIVE: CASE EVENT DATE: 20171017
